FAERS Safety Report 4954100-8 (Version None)
Quarter: 2006Q1

REPORT INFORMATION
  Report Type: 
  Country: None (occurrence: None)
  Receive Date: 20060327
  Receipt Date: 20060316
  Transmission Date: 20060701
  Serious: Yes (Other)
  Sender: FDA-Public Use
  Company Number: FR-GLAXOSMITHKLINE-B0416109A

PATIENT
  Age: 52 Year
  Sex: Male

DRUGS (1)
  1. ALBENDAZOLE [Suspect]
     Route: 065

REACTIONS (1)
  - NEUTROPENIA [None]
